FAERS Safety Report 12711649 (Version 1)
Quarter: 2016Q3

REPORT INFORMATION
  Report Type: Spontaneous
  Country: US (occurrence: US)
  Receive Date: 20160902
  Receipt Date: 20160902
  Transmission Date: 20161109
  Serious: Yes (Other)
  Sender: FDA-Public Use
  Company Number: None

PATIENT
  Sex: Female

DRUGS (1)
  1. AZITHROMYCIN ANHYDROUS. [Suspect]
     Active Substance: AZITHROMYCIN ANHYDROUS
     Indication: UPPER RESPIRATORY TRACT INFECTION
     Dosage: 250 MG 2 DAY 1 THEN 1 DAYS 2-5 BY MOUTH
     Route: 048
     Dates: start: 20160824, end: 20160828

REACTIONS (3)
  - Nausea [None]
  - Headache [None]
  - Pain [None]

NARRATIVE: CASE EVENT DATE: 20160824
